FAERS Safety Report 24981442 (Version 2)
Quarter: 2025Q3

REPORT INFORMATION
  Report Type: Spontaneous
  Country: EU (occurrence: EU)
  Receive Date: 20250218
  Receipt Date: 20250702
  Transmission Date: 20251021
  Serious: Yes (Life-Threatening, Hospitalization, Other)
  Sender: FERRING
  Company Number: EU-BAYER-2024A084912

PATIENT

DRUGS (4)
  1. DEGARELIX [Suspect]
     Active Substance: DEGARELIX
     Indication: Hormone-dependent prostate cancer
     Dosage: 240 MG, ONCE
     Route: 058
     Dates: start: 20240105, end: 20240601
  2. NUBEQA [Suspect]
     Active Substance: DAROLUTAMIDE
     Indication: Hormone-dependent prostate cancer
     Route: 048
     Dates: start: 20240201, end: 20240601
  3. DOCETAXEL [Suspect]
     Active Substance: DOCETAXEL
     Indication: Hormone-dependent prostate cancer
     Dosage: 89.5 MG, EVERY 2ND WEEK
     Route: 042
     Dates: start: 20240201, end: 20240601
  4. TORSEMIDE [Concomitant]
     Active Substance: TORSEMIDE
     Route: 065

REACTIONS (1)
  - Cardiac failure [Recovering/Resolving]

NARRATIVE: CASE EVENT DATE: 20240601
